FAERS Safety Report 7337894-6 (Version None)
Quarter: 2011Q1

REPORT INFORMATION
  Report Type: 
  Country: None (occurrence: None)
  Receive Date: 20110308
  Receipt Date: 20110225
  Transmission Date: 20110831
  Serious: Yes (Other)
  Sender: FDA-Public Use
  Company Number: US-ROCHE-762461

PATIENT

DRUGS (1)
  1. TAMIFLU [Suspect]
     Route: 065

REACTIONS (1)
  - MENTAL DISORDER [None]
